FAERS Safety Report 12398384 (Version 1)
Quarter: 2016Q2

REPORT INFORMATION
  Report Type: Spontaneous
  Country: US (occurrence: None)
  Receive Date: 20160523
  Receipt Date: 20160523
  Transmission Date: 20160815
  Serious: Yes (Other)
  Sender: FDA-Public Use
  Company Number: None

PATIENT
  Age: 57 Year
  Sex: Female
  Weight: 65.77 kg

DRUGS (1)
  1. BUPROPRION XL, 300MG GENERIC [Suspect]
     Active Substance: BUPROPION
     Indication: MAJOR DEPRESSION
     Route: 048

REACTIONS (3)
  - Panic attack [None]
  - Motor dysfunction [None]
  - Anxiety [None]

NARRATIVE: CASE EVENT DATE: 20131210
